FAERS Safety Report 10003552 (Version 1)
Quarter: 2014Q1

REPORT INFORMATION
  Report Type: Spontaneous
  Country: US (occurrence: US)
  Receive Date: 20140312
  Receipt Date: 20140312
  Transmission Date: 20141002
  Serious: No
  Sender: FDA-Public Use
  Company Number: US-ABBVIE-13P-163-1125319-00

PATIENT
  Sex: 0

DRUGS (2)
  1. DEPAKOTE [Suspect]
     Indication: BIPOLAR DISORDER
  2. LITHIUM [Suspect]
     Indication: BIPOLAR DISORDER

REACTIONS (2)
  - Fear [Unknown]
  - Drug ineffective [Unknown]
